FAERS Safety Report 4388561-2 (Version None)
Quarter: 2004Q2

REPORT INFORMATION
  Report Type: 
  Country: None (occurrence: None)
  Receive Date: 20040624
  Receipt Date: 20040610
  Transmission Date: 20050107
  Serious: Yes (Death, Life-Threatening)
  Sender: FDA-Public Use
  Company Number: 200410142BBE

PATIENT
  Sex: Female

DRUGS (1)
  1. PLASBUMIN-20 [Suspect]
     Dosage: INTRAVENOUS
     Route: 042

REACTIONS (2)
  - ANAPHYLACTIC SHOCK [None]
  - MEDICATION TAMPERING [None]
